FAERS Safety Report 5173295-7 (Version None)
Quarter: 2006Q4

REPORT INFORMATION
  Report Type: 
  Country: None (occurrence: None)
  Receive Date: 20061206
  Receipt Date: 20061121
  Transmission Date: 20070319
  Serious: Yes (Hospitalization)
  Sender: FDA-Public Use
  Company Number: 2006S1009917

PATIENT
  Age: 57 Year
  Sex: Male
  Weight: 88.4514 kg

DRUGS (20)
  1. FENTANYL TRANSDERMAL SYSTEM [Suspect]
     Indication: ARTHRITIS
     Dosage: SEE IMAGE
     Route: 062
     Dates: start: 20060809, end: 20060911
  2. FENTANYL TRANSDERMAL SYSTEM [Suspect]
     Indication: BACK PAIN
     Dosage: SEE IMAGE
     Route: 062
     Dates: start: 20060809, end: 20060911
  3. FENTANYL TRANSDERMAL SYSTEM [Suspect]
     Indication: PAIN
     Dosage: SEE IMAGE
     Route: 062
     Dates: start: 20060809, end: 20060911
  4. FENTANYL TRANSDERMAL SYSTEM [Suspect]
     Indication: ARTHRITIS
     Dosage: SEE IMAGE
     Route: 062
     Dates: start: 20060912, end: 20060919
  5. FENTANYL TRANSDERMAL SYSTEM [Suspect]
     Indication: BACK PAIN
     Dosage: SEE IMAGE
     Route: 062
     Dates: start: 20060912, end: 20060919
  6. FENTANYL TRANSDERMAL SYSTEM [Suspect]
     Indication: PAIN
     Dosage: SEE IMAGE
     Route: 062
     Dates: start: 20060912, end: 20060919
  7. TOPAMAX [Suspect]
     Dosage: SEE IMAGE
     Route: 048
     Dates: start: 20060915, end: 20060917
  8. TOPAMAX [Suspect]
     Dosage: SEE IMAGE
     Route: 048
     Dates: start: 20060918, end: 20060919
  9. CLONAZEPAM [Suspect]
     Dosage: 1 MG; HS; PO
     Route: 048
  10. CYCLOBENZAPRINE HCL [Concomitant]
  11. VICODIN [Concomitant]
  12. VYTORIN [Concomitant]
  13. TOPROL-XL [Concomitant]
  14. VITAMINS [Concomitant]
  15. ASPIRIN [Concomitant]
  16. ENALAPRIL MALEATE [Concomitant]
  17. ASCORBIC ACID [Concomitant]
  18. VITAMIN E [Concomitant]
  19. NITROGLYCERIN [Concomitant]
  20. FLUOXETINE [Concomitant]

REACTIONS (16)
  - AGGRESSION [None]
  - AGITATION [None]
  - BACK PAIN [None]
  - CONFUSIONAL STATE [None]
  - DRUG INEFFECTIVE [None]
  - DRUG WITHDRAWAL SYNDROME [None]
  - FEELING ABNORMAL [None]
  - HALLUCINATION [None]
  - MEMORY IMPAIRMENT [None]
  - MENTAL STATUS CHANGES [None]
  - MIOSIS [None]
  - OVERDOSE [None]
  - PAIN [None]
  - PHARMACEUTICAL PRODUCT COMPLAINT [None]
  - RESTLESSNESS [None]
  - VOMITING [None]
